FAERS Safety Report 6437795-1 (Version None)
Quarter: 2009Q4

REPORT INFORMATION
  Report Type: 
  Country: None (occurrence: None)
  Receive Date: 20091112
  Receipt Date: 20090521
  Transmission Date: 20100525
  Serious: Yes (Disabling, Other)
  Sender: FDA-Public Use
  Company Number: US-PFIZER INC-2005153937

PATIENT
  Sex: Female
  Weight: 68.03 kg

DRUGS (5)
  1. PREMPRO [Suspect]
     Indication: HORMONE REPLACEMENT THERAPY
     Dosage: UNK
     Dates: start: 19970101, end: 20000101
  2. PREMPRO [Suspect]
     Indication: MENOPAUSAL SYMPTOMS
  3. PROGESTERONE [Suspect]
     Indication: HORMONE REPLACEMENT THERAPY
     Dosage: UNK
     Dates: start: 19970101, end: 20000101
  4. PROGESTERONE [Suspect]
     Indication: MENOPAUSAL SYMPTOMS
  5. ACETYLSALICYLIC ACID [Concomitant]
     Indication: ARTHRITIS
     Dosage: UNK
     Dates: start: 19990101, end: 20060101

REACTIONS (1)
  - BREAST CANCER [None]
